FAERS Safety Report 16528610 (Version 6)
Quarter: 2020Q3

REPORT INFORMATION
  Report Type: Report from Study
  Country: CA (occurrence: CA)
  Receive Date: 20190703
  Receipt Date: 20200720
  Transmission Date: 20201102
  Serious: Yes (Hospitalization, Other)
  Sender: FDA-Public Use
  Company Number: PHHY2019CA146104

PATIENT
  Age: 60 Year
  Sex: Female

DRUGS (6)
  1. REVOLADE [Suspect]
     Active Substance: ELTROMBOPAG
     Indication: IMMUNE THROMBOCYTOPENIA
     Dosage: 75 MG, UNK
     Route: 048
     Dates: start: 20190613
  2. RITUXIMAB. [Suspect]
     Active Substance: RITUXIMAB
     Dosage: UNK
     Route: 065
     Dates: start: 20190615
  3. DEXAMETHASONE. [Suspect]
     Active Substance: DEXAMETHASONE
     Indication: PRODUCT USED FOR UNKNOWN INDICATION
     Dosage: 40 MG, QD
     Route: 047
     Dates: start: 20190613, end: 20190616
  4. RITUXIMAB. [Suspect]
     Active Substance: RITUXIMAB
     Indication: PRODUCT USED FOR UNKNOWN INDICATION
     Dosage: 650 MG, QW
     Route: 042
     Dates: start: 20190608
  5. AMLODIPINE [Concomitant]
     Active Substance: AMLODIPINE BESYLATE
     Indication: HYPERTENSION
     Route: 065
  6. REVOLADE [Suspect]
     Active Substance: ELTROMBOPAG
     Dosage: 25 MG, QD
     Route: 048
     Dates: start: 20190613

REACTIONS (16)
  - Haemorrhage intracranial [Unknown]
  - Immature granulocyte count increased [Unknown]
  - Hyposplenism [Unknown]
  - Nucleated red cells [Unknown]
  - Mean platelet volume increased [Unknown]
  - Platelet count decreased [Unknown]
  - Immunodeficiency [Unknown]
  - Therapy non-responder [Unknown]
  - Neutrophil count increased [Unknown]
  - Subdural haemorrhage [Unknown]
  - Immune thrombocytopenia [Unknown]
  - Confusional state [Unknown]
  - Haemoglobin decreased [Unknown]
  - Mean cell volume increased [Unknown]
  - Liver disorder [Unknown]
  - Lymphocyte count decreased [Unknown]

NARRATIVE: CASE EVENT DATE: 20190613
